FAERS Safety Report 7866629-3 (Version None)
Quarter: 2011Q4

REPORT INFORMATION
  Report Type: 
  Country: None (occurrence: None)
  Receive Date: 20111028
  Receipt Date: 20110715
  Transmission Date: 20120403
  Serious: No
  Sender: FDA-Public Use
  Company Number: US-GLAXOSMITHKLINE-A0936968A

PATIENT
  Age: 68 Year
  Sex: Male

DRUGS (10)
  1. FAMOTIDINE [Concomitant]
  2. LEVOTHYROXINE SODIUM [Concomitant]
  3. SIMVASTATIN [Concomitant]
  4. HYDROCODONE BITARTRATE [Concomitant]
  5. FUROSEMIDE [Concomitant]
  6. FINASTERIDE [Concomitant]
  7. ADVAIR DISKUS 100/50 [Suspect]
     Indication: CHRONIC OBSTRUCTIVE PULMONARY DISEASE
     Dosage: 1PUFF TWICE PER DAY
     Route: 055
     Dates: start: 20110501
  8. ALPRAZOLAM [Concomitant]
  9. LISINOPRIL [Concomitant]
  10. SOTALOL HCL [Concomitant]

REACTIONS (1)
  - DYSPHONIA [None]
